FAERS Safety Report 15613456 (Version 2)
Quarter: 2018Q4

REPORT INFORMATION
  Report Type: Spontaneous
  Country: FR (occurrence: FR)
  Receive Date: 20181113
  Receipt Date: 20181219
  Transmission Date: 20190205
  Serious: Yes (Hospitalization, Disabling)
  Sender: FDA-Public Use
  Company Number: FR-MYLANLABS-2018M1085917

PATIENT
  Age: 74 Year
  Sex: Male
  Weight: 71 kg

DRUGS (3)
  1. BUPIVACAINE. [Suspect]
     Active Substance: BUPIVACAINE
     Indication: SPINAL ANAESTHESIA
     Dosage: 13 MG, UNK
     Route: 024
     Dates: start: 20180523, end: 20180523
  2. DROLEPTAN [Concomitant]
     Active Substance: DROPERIDOL
     Dosage: UNK
     Route: 042
  3. CEFAZOLINE                         /00288501/ [Concomitant]
     Active Substance: CEFAZOLIN
     Dosage: UNK
     Route: 042

REACTIONS (1)
  - Sciatic nerve palsy [Not Recovered/Not Resolved]

NARRATIVE: CASE EVENT DATE: 20180524
